FAERS Safety Report 26045427 (Version 1)
Quarter: 2025Q4

REPORT INFORMATION
  Report Type: Spontaneous
  Country: IN (occurrence: IN)
  Receive Date: 20251114
  Receipt Date: 20251114
  Transmission Date: 20260118
  Serious: Yes (Other)
  Sender: MACLEODS
  Company Number: IN-MACLEODS PHARMA-MAC2025056313

PATIENT

DRUGS (1)
  1. LIDOCAINE [Suspect]
     Active Substance: LIDOCAINE
     Indication: Local anaesthesia
     Dosage: 20 MG (2%) INFILTRATED 1 ML

REACTIONS (3)
  - Local anaesthetic systemic toxicity [Unknown]
  - Neurotoxicity [Unknown]
  - Seizure [Recovered/Resolved]
